FAERS Safety Report 6023633-8 (Version None)
Quarter: 2008Q4

REPORT INFORMATION
  Report Type: 
  Country: None (occurrence: None)
  Receive Date: 20081226
  Receipt Date: 20081226
  Transmission Date: 20090506
  Serious: Yes (Other)
  Sender: FDA-Public Use
  Company Number: None

PATIENT
  Age: 60 Year
  Sex: Male
  Weight: 97.5234 kg

DRUGS (1)
  1. COLD-EEZE NASAL SPRAY [Suspect]
     Indication: NASOPHARYNGITIS
     Dosage: ONE SPRAY IN EACH NOSTRIL ONCE ENDOSINUSIA
     Route: 006
     Dates: start: 20081103, end: 20081103

REACTIONS (4)
  - ANOSMIA [None]
  - INJURY [None]
  - NASAL DISCOMFORT [None]
  - THROAT IRRITATION [None]
